FAERS Safety Report 5117543-8 (Version None)
Quarter: 2006Q3

REPORT INFORMATION
  Report Type: 
  Country: None (occurrence: None)
  Receive Date: 20060926
  Receipt Date: 20060907
  Transmission Date: 20061208
  Serious: Yes (Death, Hospitalization)
  Sender: FDA-Public Use
  Company Number: AR200609001664

PATIENT
  Age: 35 Year
  Sex: Female

DRUGS (9)
  1. XIGRIS [Suspect]
     Indication: UROSEPSIS
     Dates: start: 20060901, end: 20060905
  2. VALPROIC ACID [Concomitant]
  3. NORADRENALINE (NOREPINEPHRINE) [Concomitant]
  4. FUROSEMIDE [Concomitant]
  5. REMIFENTANIL [Concomitant]
  6. MIDAZOLAM HYDROCHLORIDE [Concomitant]
  7. PIPERACILLIN W/TAZOBACTAM [Concomitant]
  8. AMIKACIN [Concomitant]
  9. RANITIDINE [Concomitant]

REACTIONS (5)
  - BRAIN DEATH [None]
  - HAEMORRHAGE INTRACRANIAL [None]
  - NERVOUS SYSTEM DISORDER [None]
  - PLATELET COUNT DECREASED [None]
  - VASCULITIS [None]
